FAERS Safety Report 11498056 (Version 1)
Quarter: 2015Q3

REPORT INFORMATION
  Report Type: Spontaneous
  Country: JP (occurrence: JP)
  Receive Date: 20150911
  Receipt Date: 20150911
  Transmission Date: 20151125
  Serious: Yes (Hospitalization)
  Sender: FDA-Public Use
  Company Number: JP-MYLANLABS-2015M1029629

PATIENT

DRUGS (1)
  1. PREDNISOLONE TABLETS 1^HOEI^ [Suspect]
     Active Substance: PREDNISOLONE
     Indication: COLITIS ULCERATIVE
     Dosage: MORNING, QD
     Route: 048

REACTIONS (2)
  - Adrenal insufficiency [Unknown]
  - Hypoglycaemia [Recovered/Resolved]
